FAERS Safety Report 24680021 (Version 1)
Quarter: 2024Q4

REPORT INFORMATION
  Report Type: Spontaneous
  Country: US (occurrence: US)
  Receive Date: 20241129
  Receipt Date: 20241129
  Transmission Date: 20250115
  Serious: No
  Sender: ABBVIE
  Company Number: US-ABBVIE-6019528

PATIENT
  Age: 29 Year
  Sex: Female

DRUGS (1)
  1. UBRELVY [Suspect]
     Active Substance: UBROGEPANT
     Indication: Migraine
     Dosage: TIME INTERVAL: AS NECESSARY
     Route: 048
     Dates: start: 2024

REACTIONS (2)
  - Uterine spasm [Unknown]
  - Pain [Unknown]

NARRATIVE: CASE EVENT DATE: 20240101
